FAERS Safety Report 20224393 (Version 1)
Quarter: 2021Q4

REPORT INFORMATION
  Report Type: Other
  Country: None (occurrence: ES)
  Receive Date: 20211223
  Receipt Date: 20211223
  Transmission Date: 20220303
  Serious: Yes (Hospitalization)
  Sender: FDA-Public Use
  Company Number: ES-B.Braun Medical Inc.-2123338

PATIENT
  Age: 69 Year
  Sex: Male

DRUGS (1)
  1. MEROPENEM\SODIUM CHLORIDE [Suspect]
     Active Substance: MEROPENEM\SODIUM CHLORIDE

REACTIONS (1)
  - Drug ineffective [Recovering/Resolving]
